FAERS Safety Report 4621372-9 (Version None)
Quarter: 2005Q1

REPORT INFORMATION
  Report Type: 
  Country: None (occurrence: None)
  Receive Date: 20050323
  Receipt Date: 20050323
  Transmission Date: 20050727
  Serious: Yes (Hospitalization)
  Sender: FDA-Public Use
  Company Number: None

PATIENT
  Age: 65 Year
  Sex: Male
  Weight: 70.3075 kg

DRUGS (2)
  1. CLONAZEPAM [Suspect]
     Indication: ANTIDEPRESSANT THERAPY
     Dosage: 0.5MG  1 BID   ORAL
     Route: 048
     Dates: start: 20040927, end: 20041022
  2. CLONAZEPAM [Suspect]
     Indication: ANXIETY
     Dosage: 0.5MG  1 BID   ORAL
     Route: 048
     Dates: start: 20040927, end: 20041022

REACTIONS (1)
  - FAILURE TO THRIVE [None]
